FAERS Safety Report 5523574-6 (Version None)
Quarter: 2007Q4

REPORT INFORMATION
  Report Type: 
  Country: None (occurrence: None)
  Receive Date: 20071121
  Receipt Date: 20071113
  Transmission Date: 20080405
  Serious: Yes (Hospitalization, Other)
  Sender: FDA-Public Use
  Company Number: US-KINGPHARMUSA00001-K200701464

PATIENT

DRUGS (5)
  1. ALTACE [Suspect]
     Indication: BLOOD PRESSURE INCREASED
     Dosage: 2.5 MG, QD
     Route: 048
     Dates: start: 20070301, end: 20070801
  2. ALTACE [Suspect]
     Dosage: 2.5 MG, UNK
     Route: 048
     Dates: start: 20070101
  3. CASODEX [Suspect]
     Indication: PROSTATE CANCER
     Dosage: 150 MG, QD
     Route: 048
     Dates: start: 20070401, end: 20070430
  4. CASODEX [Suspect]
     Route: 048
     Dates: start: 20070604, end: 20070819
  5. CASODEX [Suspect]
     Route: 048
     Dates: start: 20070828, end: 20070906

REACTIONS (8)
  - ALANINE AMINOTRANSFERASE INCREASED [None]
  - CHROMATURIA [None]
  - DYSGEUSIA [None]
  - FAECES PALE [None]
  - FATIGUE [None]
  - HEPATOCELLULAR DAMAGE [None]
  - NAUSEA [None]
  - PAROSMIA [None]
